FAERS Safety Report 12645525 (Version 1)
Quarter: 2016Q3

REPORT INFORMATION
  Report Type: Spontaneous
  Country: US (occurrence: US)
  Receive Date: 20160811
  Receipt Date: 20160811
  Transmission Date: 20161109
  Serious: No
  Sender: FDA-Public Use
  Company Number: US-PFIZER INC-2016358625

PATIENT
  Age: 80 Year
  Sex: Female
  Weight: 50 kg

DRUGS (1)
  1. NIFEDIPINE. [Suspect]
     Active Substance: NIFEDIPINE
     Indication: HYPERTENSION
     Dosage: 60 MG, UNK

REACTIONS (2)
  - Gingival swelling [Recovered/Resolved]
  - Stomatitis [Recovered/Resolved]
